FAERS Safety Report 6305676-X (Version None)
Quarter: 2009Q3

REPORT INFORMATION
  Report Type: 
  Country: None (occurrence: None)
  Receive Date: 20090807
  Receipt Date: 20090730
  Transmission Date: 20100115
  Serious: Yes (Other)
  Sender: FDA-Public Use
  Company Number: 2009EN000198

PATIENT
  Age: 24 Year
  Sex: Female
  Weight: 92 kg

DRUGS (24)
  1. ONCASPAR [Suspect]
     Indication: ACUTE LYMPHOCYTIC LEUKAEMIA
     Dosage: 5325 IU;X1;IV
     Route: 042
     Dates: start: 20090522, end: 20090522
  2. ALLOPURINOL [Concomitant]
  3. PRILOSEC [Concomitant]
  4. ACYCLOVIR [Concomitant]
  5. ATIVAN [Concomitant]
  6. COMPAZINE [Concomitant]
  7. DEPO-PROVERA [Concomitant]
  8. PHENERGAN ^WYETH-AYERST^ [Concomitant]
  9. MICAFUNGIN [Concomitant]
  10. RENAGEL [Concomitant]
  11. ARA-C [Concomitant]
  12. IMIPENEM [Concomitant]
  13. ZOFRAN [Concomitant]
  14. METHYLPREDNISOLONE 4MG TAB [Concomitant]
  15. PREDNISONE [Concomitant]
  16. VINCRISTINE [Concomitant]
  17. METHOTREXATE [Concomitant]
  18. CYTARABINE [Concomitant]
  19. HYDROCORTISONE [Concomitant]
  20. METHOTREXATE [Concomitant]
  21. LOVENOX [Concomitant]
  22. ACTIGALL [Concomitant]
  23. ORLISTAT [Concomitant]
  24. FISH OIL [Concomitant]

REACTIONS (2)
  - HEPATITIS [None]
  - HEPATOTOXICITY [None]
